FAERS Safety Report 5103083-9 (Version None)
Quarter: 2006Q3

REPORT INFORMATION
  Report Type: 
  Country: None (occurrence: None)
  Receive Date: 20060907
  Receipt Date: 20060829
  Transmission Date: 20061208
  Serious: Yes (Death, Hospitalization)
  Sender: FDA-Public Use
  Company Number: FRWYE796629AUG06

PATIENT
  Age: 86 Year
  Sex: Female

DRUGS (6)
  1. TAZOCILLINE (PIPERACILLIN/TAZOBACTAM, INJECTION) [Suspect]
     Indication: PERITONITIS
     Dosage: 8 G TOTAL DAILY, INTRAVENOUS
     Route: 042
     Dates: start: 20060803, end: 20060807
  2. PERFALGAN (PARACETAMOL) [Concomitant]
  3. INIPOMP (PANTOPRAZOLE) [Concomitant]
  4. NORADRENALINE (NOREPINEPHRINE) [Concomitant]
  5. MORPHINE [Concomitant]
  6. GLUCOSE (GLUCOSE) [Concomitant]

REACTIONS (2)
  - MYELOID MATURATION ARREST [None]
  - PANCYTOPENIA [None]
